FAERS Safety Report 12119652 (Version 2)
Quarter: 2016Q2

REPORT INFORMATION
  Report Type: Spontaneous
  Country: US (occurrence: US)
  Receive Date: 20160226
  Receipt Date: 20160509
  Transmission Date: 20160815
  Serious: Yes (Death, Other)
  Sender: FDA-Public Use
  Company Number: US-TEVA-636660USA

PATIENT
  Sex: Male

DRUGS (15)
  1. FUROSEMIDE. [Suspect]
     Active Substance: FUROSEMIDE
     Dosage: 40 MILLIGRAM DAILY;
     Route: 065
  2. DILTIAZEM [Suspect]
     Active Substance: DILTIAZEM
     Dosage: 60 MILLIGRAM DAILY;
     Route: 065
  3. SPIRIVA [Suspect]
     Active Substance: TIOTROPIUM BROMIDE MONOHYDRATE
     Dosage: 30 MICROGRAM DAILY; IN AM
     Route: 065
     Dates: start: 2004
  4. OXYGEN. [Suspect]
     Active Substance: OXYGEN
     Route: 065
     Dates: start: 20151015
  5. WARFARIN [Suspect]
     Active Substance: WARFARIN
     Route: 065
     Dates: start: 20151015
  6. PROAIR HFA [Suspect]
     Active Substance: ALBUTEROL SULFATE
     Dosage: 180 MICROGRAM DAILY;
     Route: 055
  7. TAMSULOSIN [Suspect]
     Active Substance: TAMSULOSIN
     Dosage: .8 MILLIGRAM DAILY; IN EVENING
     Route: 065
     Dates: start: 20120823
  8. CALTRATE [Suspect]
     Active Substance: CALCIUM CARBONATE
     Dosage: 600 MILLIGRAM DAILY; AM
     Route: 065
  9. QVAR [Suspect]
     Active Substance: BECLOMETHASONE DIPROPIONATE
     Dosage: 1 PUFF AM AND PM
     Route: 065
  10. HYDROCHLOROTHIAZIDE. [Suspect]
     Active Substance: HYDROCHLOROTHIAZIDE
     Dosage: 25 MILLIGRAM DAILY;
     Route: 065
  11. BUPROPION. [Suspect]
     Active Substance: BUPROPION
     Dosage: 300 MILLIGRAM DAILY; IN AM AND PM
     Route: 065
  12. REVATIO [Suspect]
     Active Substance: SILDENAFIL CITRATE
     Route: 065
  13. IPRATROPIUM/ALBUTEROL [Suspect]
     Active Substance: ALBUTEROL\IPRATROPIUM
     Dosage: 3MG/ML 1 EVERY 4-6H AS NEEDED
     Route: 055
  14. WARFARIN [Suspect]
     Active Substance: WARFARIN
     Dosage: MAX AT 7.5MG OVER 10-15 YRS
  15. IRON [Suspect]
     Active Substance: IRON
     Route: 065
     Dates: start: 20151015

REACTIONS (12)
  - Chronic obstructive pulmonary disease [Fatal]
  - Bronchitis [Unknown]
  - Disease complication [Fatal]
  - Dyspnoea [Unknown]
  - Cardiac failure [Fatal]
  - Atrial fibrillation [Fatal]
  - Pulmonary hypertension [Fatal]
  - Fall [Unknown]
  - Oedema [Unknown]
  - Asthma [Unknown]
  - Lethargy [Unknown]
  - Diabetes mellitus [Fatal]

NARRATIVE: CASE EVENT DATE: 1995
